FAERS Safety Report 14902290 (Version 1)
Quarter: 2018Q2

REPORT INFORMATION
  Report Type: Spontaneous
  Country: GR (occurrence: GR)
  Receive Date: 20180516
  Receipt Date: 20180516
  Transmission Date: 20180711
  Serious: Yes (Life-Threatening)
  Sender: FDA-Public Use
  Company Number: GR-SHIRE-GR201818086

PATIENT

DRUGS (1)
  1. ONCASPAR [Suspect]
     Active Substance: PEGASPARGASE
     Indication: ACUTE LYMPHOCYTIC LEUKAEMIA
     Dosage: 2150 IU, UNK
     Route: 042
     Dates: start: 20180421, end: 20180421

REACTIONS (2)
  - Abdominal pain [Unknown]
  - Cough [Unknown]

NARRATIVE: CASE EVENT DATE: 20180421
